FAERS Safety Report 8455353-4 (Version None)
Quarter: 2012Q2

REPORT INFORMATION
  Report Type: 
  Country: None (occurrence: None)
  Receive Date: 20120621
  Receipt Date: 20120611
  Transmission Date: 20120825
  Serious: Yes (Other)
  Sender: FDA-Public Use
  Company Number: US-ELI_LILLY_AND_COMPANY-US201102001864

PATIENT
  Sex: Female

DRUGS (3)
  1. PLAQUENIL [Concomitant]
     Indication: ARTHRITIS
  2. FORTEO [Suspect]
     Indication: OSTEOPOROSIS
     Dosage: 20 UG, DAILY (1/D)
     Route: 065
     Dates: start: 20101108
  3. FORTEO [Suspect]
     Dosage: 20 UG, DAILY (1/D)
     Route: 065
     Dates: start: 20101108

REACTIONS (8)
  - RETINAL TOXICITY [None]
  - GAIT DISTURBANCE [None]
  - MACULAR DEGENERATION [None]
  - ASTHENIA [None]
  - PAIN [None]
  - VISUAL IMPAIRMENT [None]
  - ARTHRALGIA [None]
  - SOMNOLENCE [None]
